FAERS Safety Report 15981565 (Version 2)
Quarter: 2019Q2

REPORT INFORMATION
  Report Type: Spontaneous
  Country: US (occurrence: US)
  Receive Date: 20190219
  Receipt Date: 20190611
  Transmission Date: 20190711
  Serious: Yes (Death, Other)
  Sender: FDA-Public Use
  Company Number: US-PFIZER INC-2019076010

PATIENT
  Age: 71 Year
  Sex: Male

DRUGS (3)
  1. ETHAMBUTOL [Concomitant]
     Active Substance: ETHAMBUTOL HYDROCHLORIDE
     Indication: MYCOBACTERIUM AVIUM COMPLEX INFECTION
     Dosage: UNK
     Dates: start: 201808, end: 201901
  2. AZITHROMYCIN ANHYDROUS. [Concomitant]
     Active Substance: AZITHROMYCIN ANHYDROUS
     Indication: MYCOBACTERIUM AVIUM COMPLEX INFECTION
     Dosage: UNK
     Dates: start: 201808, end: 201901
  3. MYCOBUTIN [Suspect]
     Active Substance: RIFABUTIN
     Indication: MYCOBACTERIUM AVIUM COMPLEX INFECTION
     Dosage: 300 MG, DAILY (150 MG TAKE 2 TABLETS)
     Route: 048
     Dates: start: 201808

REACTIONS (6)
  - Fall [Fatal]
  - Cardiac arrest [Fatal]
  - General physical condition abnormal [Unknown]
  - Femur fracture [Fatal]
  - Pulmonary embolism [Fatal]
  - Fat embolism [Fatal]

NARRATIVE: CASE EVENT DATE: 201901
